FAERS Safety Report 9297930 (Version 1)
Quarter: 2013Q2

REPORT INFORMATION
  Report Type: Spontaneous
  Country: US (occurrence: US)
  Receive Date: 20130520
  Receipt Date: 20130520
  Transmission Date: 20140414
  Serious: No
  Sender: FDA-Public Use
  Company Number: US-009507513-1305USA009493

PATIENT
  Sex: Female

DRUGS (1)
  1. NUVARING [Suspect]
     Indication: CONTRACEPTION
     Dosage: 3 WEEK RING
     Route: 067
     Dates: start: 201212

REACTIONS (3)
  - Wrong technique in drug usage process [Unknown]
  - Product quality issue [Unknown]
  - No adverse event [Unknown]
